FAERS Safety Report 13795919 (Version 1)
Quarter: 2017Q3

REPORT INFORMATION
  Report Type: Spontaneous
  Country: US (occurrence: US)
  Receive Date: 20170726
  Receipt Date: 20170726
  Transmission Date: 20171127
  Serious: No
  Sender: FDA-Public Use
  Company Number: US-SHIRE-US201714900

PATIENT

DRUGS (1)
  1. XIIDRA [Suspect]
     Active Substance: LIFITEGRAST
     Indication: PRODUCT USED FOR UNKNOWN INDICATION
     Route: 047

REACTIONS (8)
  - Instillation site discomfort [Unknown]
  - Condition aggravated [Unknown]
  - Vision blurred [Unknown]
  - Instillation site reaction [Unknown]
  - Drug ineffective [Unknown]
  - Drug dose omission [Unknown]
  - Urticaria [Unknown]
  - Instillation site irritation [Unknown]
